FAERS Safety Report 20706361 (Version 1)
Quarter: 2022Q2

REPORT INFORMATION
  Report Type: Spontaneous
  Country: US (occurrence: None)
  Receive Date: 20220413
  Receipt Date: 20220413
  Transmission Date: 20220721
  Serious: Yes (Hospitalization)
  Sender: FDA-Public Use
  Company Number: None

PATIENT
  Sex: Male

DRUGS (10)
  1. AMBRISENTAN [Suspect]
     Active Substance: AMBRISENTAN
     Indication: Pulmonary arterial hypertension
     Dosage: FREQUENCY : DAILY;?
     Route: 048
  2. ATORVASTATIN CALCIUM [Concomitant]
     Active Substance: ATORVASTATIN CALCIUM
  3. LASIX [Concomitant]
     Active Substance: FUROSEMIDE
  4. METOPROLOL TARTRATE [Concomitant]
     Active Substance: METOPROLOL TARTRATE
  5. METFORMIN HYDROCHLORIDE [Concomitant]
     Active Substance: METFORMIN HYDROCHLORIDE
  6. VITAMIN D [Concomitant]
     Active Substance: VITAMIN D NOS
  7. XARELTO [Concomitant]
     Active Substance: RIVAROXABAN
  8. ANASTROZOLE [Concomitant]
     Active Substance: ANASTROZOLE
  9. SOTALOL [Concomitant]
     Active Substance: SOTALOL
  10. TADALAFIL [Suspect]
     Active Substance: TADALAFIL

REACTIONS (5)
  - Dyspnoea [None]
  - Chest pain [None]
  - Arterial catheterisation [None]
  - Drug ineffective [None]
  - Therapy interrupted [None]
